FAERS Safety Report 24997053 (Version 1)
Quarter: 2025Q1

REPORT INFORMATION
  Report Type: Spontaneous
  Country: US (occurrence: US)
  Receive Date: 20250221
  Receipt Date: 20250221
  Transmission Date: 20250409
  Serious: No
  Sender: BIOMARIN
  Company Number: US-BIOMARINAP-US-2025-163974

PATIENT

DRUGS (1)
  1. VOXZOGO [Suspect]
     Active Substance: VOSORITIDE
     Indication: Osteochondrodysplasia
     Dosage: 0.4 MILLIGRAM, QD
     Route: 058
     Dates: start: 20241114

REACTIONS (3)
  - Hair growth abnormal [Unknown]
  - Hair colour changes [Unknown]
  - Hair texture abnormal [Unknown]
